FAERS Safety Report 10173836 (Version 1)
Quarter: 2014Q2

REPORT INFORMATION
  Report Type: Spontaneous
  Country: US (occurrence: None)
  Receive Date: 20140514
  Receipt Date: 20140514
  Transmission Date: 20141212
  Serious: Yes (Other)
  Sender: FDA-Public Use
  Company Number: None

PATIENT
  Age: 58 Year
  Sex: Female
  Weight: 127.01 kg

DRUGS (1)
  1. AMLODIPINE [Suspect]
     Indication: THERAPY CHANGE
     Dosage: 1
     Route: 048
     Dates: start: 20140423, end: 20140428

REACTIONS (3)
  - Chest pain [None]
  - Dizziness [None]
  - Hyperhidrosis [None]
